FAERS Safety Report 22032769 (Version 1)
Quarter: 2023Q1

REPORT INFORMATION
  Report Type: Spontaneous
  Country: US (occurrence: None)
  Receive Date: 20230223
  Receipt Date: 20230223
  Transmission Date: 20230417
  Serious: No
  Sender: FDA-Public Use
  Company Number: None

PATIENT
  Age: 62 Year
  Sex: Female
  Weight: 56.7 kg

DRUGS (3)
  1. ARTIFICIAL TEARS LUBRICANT EYE DROPS (CARBOXYMETHYLCELLULOSE SODIUM) [Suspect]
     Active Substance: CARBOXYMETHYLCELLULOSE SODIUM
     Indication: Dry eye
     Dosage: FREQUENCY : TWICE A DAY;?
     Route: 047
     Dates: start: 20221215, end: 20221217
  2. CRESTOR [Concomitant]
  3. TYLENOL [Concomitant]

REACTIONS (6)
  - Eye pain [None]
  - Eye irritation [None]
  - Photosensitivity reaction [None]
  - Erythema of eyelid [None]
  - Ocular hyperaemia [None]
  - Periorbital swelling [None]

NARRATIVE: CASE EVENT DATE: 20221215
